FAERS Safety Report 14123858 (Version 2)
Quarter: 2017Q4

REPORT INFORMATION
  Report Type: Spontaneous
  Country: US (occurrence: US)
  Receive Date: 20171025
  Receipt Date: 20171110
  Transmission Date: 20180321
  Serious: No
  Sender: FDA-Public Use
  Company Number: US-ASTRAZENECA-2017SF05100

PATIENT
  Age: 23312 Day
  Sex: Male
  Weight: 84.8 kg

DRUGS (8)
  1. ELIQUIS [Concomitant]
     Active Substance: APIXABAN
  2. DIGOXIN. [Concomitant]
     Active Substance: DIGOXIN
  3. FARXIGA [Suspect]
     Active Substance: DAPAGLIFLOZIN PROPANEDIOL
     Indication: DIABETES MELLITUS
     Route: 048
     Dates: start: 20141209
  4. SYNTHROID [Concomitant]
     Active Substance: LEVOTHYROXINE SODIUM
  5. HCTZ [Concomitant]
     Active Substance: HYDROCHLOROTHIAZIDE
  6. VALSARTAN. [Concomitant]
     Active Substance: VALSARTAN
  7. FARXIGA [Suspect]
     Active Substance: DAPAGLIFLOZIN PROPANEDIOL
     Indication: GLYCOSYLATED HAEMOGLOBIN INCREASED
     Route: 048
     Dates: start: 20141209
  8. METOPROLOL. [Concomitant]
     Active Substance: METOPROLOL

REACTIONS (1)
  - Weight decreased [Unknown]

NARRATIVE: CASE EVENT DATE: 20141214
